FAERS Safety Report 7247414-2 (Version None)
Quarter: 2011Q1

REPORT INFORMATION
  Report Type: 
  Country: None (occurrence: None)
  Receive Date: 20110127
  Receipt Date: 20110118
  Transmission Date: 20110831
  Serious: Yes (Death, Hospitalization, Other)
  Sender: FDA-Public Use
  Company Number: PHHY2008JP27459

PATIENT
  Age: 32 Year
  Sex: Female

DRUGS (7)
  1. FK 506 [Concomitant]
  2. CYLOCIDE [Concomitant]
  3. RADIOTHERAPY [Concomitant]
  4. ENDOXAN [Concomitant]
  5. SANDIMMUNE [Suspect]
     Indication: STEM CELL TRANSPLANT
  6. CHEMOTHERAPEUTICS NOS [Concomitant]
  7. SANDIMMUNE [Suspect]
     Indication: CORD BLOOD TRANSPLANT THERAPY
     Dosage: 150-200 MG/DAY
     Route: 042
     Dates: start: 20080624, end: 20080721

REACTIONS (10)
  - GRAND MAL CONVULSION [None]
  - SUBARACHNOID HAEMORRHAGE [None]
  - HYPERTENSION [None]
  - POSTERIOR REVERSIBLE ENCEPHALOPATHY SYNDROME [None]
  - THROMBOCYTOPENIA [None]
  - BRAIN OEDEMA [None]
  - VISUAL IMPAIRMENT [None]
  - DEPRESSED LEVEL OF CONSCIOUSNESS [None]
  - PNEUMONIA [None]
  - CYTOKINE STORM [None]
